FAERS Safety Report 20659600 (Version 2)
Quarter: 2022Q2

REPORT INFORMATION
  Report Type: Spontaneous
  Country: US (occurrence: US)
  Receive Date: 20220331
  Receipt Date: 20220414
  Transmission Date: 20220721
  Serious: No
  Sender: FDA-Public Use
  Company Number: US-BAXTER-2022BAX006683

PATIENT

DRUGS (1)
  1. NOREPINEPHRINE BITARTRATE [Suspect]
     Active Substance: NOREPINEPHRINE BITARTRATE
     Indication: Product used for unknown indication
     Dosage: DOSE: 0.3 MG/KG/HR
     Route: 065

REACTIONS (2)
  - Hypotension [Unknown]
  - Device infusion issue [Unknown]

NARRATIVE: CASE EVENT DATE: 20220307
